FAERS Safety Report 17489421 (Version 1)
Quarter: 2020Q1

REPORT INFORMATION
  Report Type: Report from Study
  Country: GB (occurrence: GB)
  Receive Date: 20200303
  Receipt Date: 20200303
  Transmission Date: 20200409
  Serious: Yes (Other)
  Sender: FDA-Public Use
  Company Number: GB-MYLANLABS-2020M1023059

PATIENT
  Age: 70 Year
  Sex: Female

DRUGS (6)
  1. FERROUS SULFATE. [Concomitant]
     Active Substance: FERROUS SULFATE
     Indication: ANAEMIA
     Dosage: 200 MILLIGRAM, QD
     Route: 048
     Dates: start: 201601, end: 20160421
  2. PACLITAXEL. [Suspect]
     Active Substance: PACLITAXEL
     Dosage: 144 MILLIGRAM, QD
     Route: 042
     Dates: start: 20150227, end: 20150313
  3. TRASTUZUMAB. [Suspect]
     Active Substance: TRASTUZUMAB
     Indication: BREAST CANCER METASTATIC
     Dosage: 294 MILLIGRAM, QD
     Route: 042
     Dates: start: 20150305, end: 20150305
  4. TRASTUZUMAB. [Suspect]
     Active Substance: TRASTUZUMAB
     Dosage: 441 MILLIGRAM, QD
     Route: 042
     Dates: start: 20150605, end: 20150605
  5. PACLITAXEL. [Suspect]
     Active Substance: PACLITAXEL
     Indication: BREAST CANCER METASTATIC
     Dosage: 132 MILLIGRAM, QW
     Route: 042
     Dates: start: 20150320, end: 20150515
  6. TRASTUZUMAB. [Suspect]
     Active Substance: TRASTUZUMAB
     Dosage: 147 MILLIGRAM, QW
     Route: 042
     Dates: start: 20150313, end: 20150515

REACTIONS (1)
  - Escherichia urinary tract infection [Recovered/Resolved]

NARRATIVE: CASE EVENT DATE: 20151116
